APPROVED DRUG PRODUCT: ACETAZOLAMIDE
Active Ingredient: ACETAZOLAMIDE
Strength: 250MG
Dosage Form/Route: TABLET;ORAL
Application: A214282 | Product #002 | TE Code: AB
Applicant: MANKIND PHARMA LTD
Approved: Oct 7, 2020 | RLD: No | RS: No | Type: RX